FAERS Safety Report 20360093 (Version 1)
Quarter: 2022Q1

REPORT INFORMATION
  Report Type: Spontaneous
  Country: US (occurrence: US)
  Receive Date: 20220121
  Receipt Date: 20220121
  Transmission Date: 20220423
  Serious: Yes (Other)
  Sender: FDA-Public Use
  Company Number: US-PBT-004251-01

PATIENT
  Age: 23 Month
  Sex: Female

DRUGS (1)
  1. TACROLIMUS [Suspect]
     Active Substance: TACROLIMUS
     Indication: Prophylaxis against transplant rejection
     Dosage: DAILY
     Route: 065

REACTIONS (2)
  - Post transplant lymphoproliferative disorder [Recovering/Resolving]
  - Upper airway obstruction [Unknown]
